FAERS Safety Report 5387245-1 (Version None)
Quarter: 2007Q3

REPORT INFORMATION
  Report Type: 
  Country: None (occurrence: None)
  Receive Date: 20070716
  Receipt Date: 20070705
  Transmission Date: 20080115
  Serious: Yes (Hospitalization, Other)
  Sender: FDA-Public Use
  Company Number: GB-JNJFOC-20070701256

PATIENT
  Sex: Male
  Weight: 102 kg

DRUGS (9)
  1. REMICADE [Suspect]
     Indication: RHEUMATOID ARTHRITIS
     Route: 042
  2. LANSOPRAZOLE [Concomitant]
  3. METHOTREXATE [Concomitant]
  4. PREDNISOLONE [Concomitant]
  5. CALCICHEW [Concomitant]
  6. CO-PROXAMOL [Concomitant]
  7. FOLIC ACID [Concomitant]
  8. GTN SPRAY [Concomitant]
  9. RISEDRONATE SODIUM [Concomitant]

REACTIONS (1)
  - DIVERTICULITIS [None]
